FAERS Safety Report 16827413 (Version 1)
Quarter: 2019Q3

REPORT INFORMATION
  Report Type: Spontaneous
  Country: US (occurrence: US)
  Receive Date: 20190919
  Receipt Date: 20190919
  Transmission Date: 20191005
  Serious: No
  Sender: FDA-Public Use
  Company Number: US-BAYER-2019-171207

PATIENT
  Sex: Female

DRUGS (4)
  1. METFORMIN [Concomitant]
     Active Substance: METFORMIN HYDROCHLORIDE
  2. JANUVIA [Concomitant]
     Active Substance: SITAGLIPTIN PHOSPHATE
  3. LOTRIMIN ULTRA [Suspect]
     Active Substance: BUTENAFINE HYDROCHLORIDE
     Indication: SKIN INFECTION
     Dosage: AS PER DIRECTIONS
     Route: 061
     Dates: start: 20190917
  4. DESITIN [ZINC OXIDE] [Concomitant]
     Indication: SKIN INFECTION

REACTIONS (1)
  - Product use in unapproved indication [Unknown]
